FAERS Safety Report 7867826-3 (Version None)
Quarter: 2011Q4

REPORT INFORMATION
  Report Type: 
  Country: None (occurrence: None)
  Receive Date: 20111028
  Receipt Date: 20111019
  Transmission Date: 20120403
  Serious: Yes (Hospitalization)
  Sender: FDA-Public Use
  Company Number: AU-ASTRAZENECA-2011SE62952

PATIENT
  Age: 29 Year
  Sex: Female

DRUGS (4)
  1. RISPERIDONE [Suspect]
  2. SEROQUEL [Suspect]
     Route: 048
  3. VALPROATE SODIUM [Suspect]
  4. LITHIUM CARBONATE [Suspect]

REACTIONS (4)
  - MENSTRUAL DISORDER [None]
  - HIRSUTISM [None]
  - WEIGHT INCREASED [None]
  - PH BODY FLUID ABNORMAL [None]
